FAERS Safety Report 20175710 (Version 1)
Quarter: 2021Q4

REPORT INFORMATION
  Report Type: Spontaneous
  Country: US (occurrence: US)
  Receive Date: 20211213
  Receipt Date: 20211213
  Transmission Date: 20220303
  Serious: No
  Sender: FDA-Public Use
  Company Number: US-PFIZER INC-2021495131

PATIENT
  Age: 57 Year
  Sex: Female
  Weight: 67.59 kg

DRUGS (3)
  1. GABAPENTIN [Suspect]
     Active Substance: GABAPENTIN
     Indication: Cubital tunnel syndrome
     Dosage: 200 MG, 1X/DAY
     Dates: start: 202103
  2. CELEBREX [Concomitant]
     Active Substance: CELECOXIB
     Indication: Cubital tunnel syndrome
     Dosage: 200 MG, 2X/DAY
     Dates: start: 202101
  3. LEVOTHYROXINE [Concomitant]
     Active Substance: LEVOTHYROXINE
     Indication: Thyroid disorder
     Dosage: 0.88 MG, 1X/DAY

REACTIONS (2)
  - Gait disturbance [Not Recovered/Not Resolved]
  - Off label use [Unknown]

NARRATIVE: CASE EVENT DATE: 20210301
